FAERS Safety Report 5209735-4 (Version None)
Quarter: 2006Q4

REPORT INFORMATION
  Report Type: 
  Country: None (occurrence: None)
  Receive Date: 20061116
  Receipt Date: 20060411
  Transmission Date: 20070319
  Serious: Yes (Other)
  Sender: FDA-Public Use
  Company Number: 26659

PATIENT
  Sex: Male
  Weight: 61.2356 kg

DRUGS (6)
  1. CISPLATIN [Suspect]
     Indication: OESOPHAGEAL CARCINOMA
     Dosage: 64MG, DAY8 AND DAY 29 OF 6 W
     Dates: start: 20060214
  2. BENADRYL [Concomitant]
  3. TAGAMET [Concomitant]
  4. DECADRON [Concomitant]
  5. ATIVAN [Concomitant]
  6. SOLU-MEDROL [Concomitant]

REACTIONS (3)
  - DYSPNOEA [None]
  - FLUSHING [None]
  - HYPOXIA [None]
